FAERS Safety Report 20170925 (Version 1)
Quarter: 2021Q4

REPORT INFORMATION
  Report Type: Spontaneous
  Country: US (occurrence: None)
  Receive Date: 20211210
  Receipt Date: 20211210
  Transmission Date: 20220303
  Serious: Yes (Hospitalization)
  Sender: FDA-Public Use
  Company Number: None

PATIENT
  Age: 58 Year
  Sex: Female

DRUGS (22)
  1. FORTEO [Suspect]
     Active Substance: TERIPARATIDE
     Indication: Bone disorder
     Dosage: FREQUENCY : DAILY;?
     Route: 048
     Dates: start: 20210625
  2. APAP/CODEINE [Concomitant]
  3. ATORVASTATIN [Concomitant]
  4. CEPHALEXIN [Concomitant]
  5. CIPROFLOXACN [Concomitant]
  6. CYCLOBENZAPR [Concomitant]
  7. DULERA [Concomitant]
  8. ELIQUIS [Concomitant]
  9. FLUTICASONE SPR [Concomitant]
  10. IPRATROPIUM/SOL [Concomitant]
  11. ALBUTER [Concomitant]
  12. LORAZEPAM [Concomitant]
  13. METHOCARBAM [Concomitant]
  14. METOPROL SUC ER [Concomitant]
  15. MONTELUKAST [Concomitant]
  16. PREDNISONE [Concomitant]
  17. PREGABALIN [Concomitant]
  18. TRAMADOL HCL [Concomitant]
  19. VIOS MIS SYSTEM [Concomitant]
  20. VITAMIN D [Concomitant]
  21. VYVANSE [Concomitant]
  22. ZINC SULFATE [Concomitant]

REACTIONS (2)
  - Fall [None]
  - Skull fracture [None]

NARRATIVE: CASE EVENT DATE: 20211203
